FAERS Safety Report 20734645 (Version 1)
Quarter: 2022Q2

REPORT INFORMATION
  Report Type: Spontaneous
  Country: US (occurrence: None)
  Receive Date: 20220420
  Receipt Date: 20220420
  Transmission Date: 20220721
  Serious: Yes (Hospitalization)
  Sender: FDA-Public Use
  Company Number: None

PATIENT
  Age: 78 Year
  Sex: Male
  Weight: 78.93 kg

DRUGS (15)
  1. VOTRIENT [Suspect]
     Active Substance: PAZOPANIB HYDROCHLORIDE
     Indication: Renal cancer
     Dosage: FREQUENCY : DAILY;?
     Route: 048
  2. ATORVASTATIN [Concomitant]
     Active Substance: ATORVASTATIN
  3. Calcitriol (Systemic) [Concomitant]
  4. CALCIUM ACETATE [Concomitant]
     Active Substance: CALCIUM ACETATE
  5. Centrum (SYN) [Concomitant]
  6. CLONIDINE [Concomitant]
     Active Substance: CLONIDINE
  7. flonase allergy relief(OTC) [Concomitant]
  8. GABAPENTIN [Concomitant]
     Active Substance: GABAPENTIN
  9. LASIX [Concomitant]
     Active Substance: FUROSEMIDE
  10. lomitil [Concomitant]
  11. lueitn [Concomitant]
  12. MESALAMINE [Concomitant]
     Active Substance: MESALAMINE
  13. METOPROLOL [Concomitant]
     Active Substance: METOPROLOL
  14. PROCHLORPERAZINE [Concomitant]
     Active Substance: PROCHLORPERAZINE
  15. Vitamin E (Systemic) [Concomitant]

REACTIONS (4)
  - Nausea [None]
  - Vomiting [None]
  - Stomach mass [None]
  - Therapy interrupted [None]
